FAERS Safety Report 18446023 (Version 1)
Quarter: 2020Q4

REPORT INFORMATION
  Report Type: Spontaneous
  Country: US (occurrence: US)
  Receive Date: 20201030
  Receipt Date: 20201030
  Transmission Date: 20210114
  Serious: Yes (Other)
  Sender: FDA-Public Use
  Company Number: US-009507513-2010USA008973

PATIENT
  Age: 71 Year
  Sex: Male

DRUGS (1)
  1. INVANZ [Suspect]
     Active Substance: ERTAPENEM SODIUM
     Indication: UROSEPSIS
     Dosage: UNK
     Route: 042

REACTIONS (3)
  - Neurotoxicity [Recovered/Resolved]
  - Chorea [Recovered/Resolved]
  - Hallucination [Recovered/Resolved]
